FAERS Safety Report 23538158 (Version 2)
Quarter: 2024Q1

REPORT INFORMATION
  Report Type: Other
  Country: US (occurrence: None)
  Receive Date: 20240219
  Receipt Date: 20240223
  Transmission Date: 20240410
  Serious: No
  Sender: FDA-Public Use
  Company Number: US-ROCHE-3507165

PATIENT
  Age: 46 Year
  Sex: Female

DRUGS (12)
  1. OCREVUS [Suspect]
     Active Substance: OCRELIZUMAB
     Indication: Relapsing-remitting multiple sclerosis
     Route: 065
  2. ACETAMINOPHEN [Concomitant]
     Active Substance: ACETAMINOPHEN
  3. ALPRAZOLAM [Concomitant]
     Active Substance: ALPRAZOLAM
  4. CHOLECALCIFEROL [Concomitant]
     Active Substance: CHOLECALCIFEROL
  5. CYANOCOBALAMIN [Concomitant]
     Active Substance: CYANOCOBALAMIN
  6. DIPHENHYDRAMINE [Concomitant]
     Active Substance: DIPHENHYDRAMINE
  7. HERBALS [Concomitant]
     Active Substance: HERBALS
  8. EPINEPHRINE [Concomitant]
     Active Substance: EPINEPHRINE
  9. MODAFINIL [Concomitant]
     Active Substance: MODAFINIL
  10. VITAMINS [Concomitant]
     Active Substance: VITAMINS
  11. SERTRALINE [Concomitant]
     Active Substance: SERTRALINE HYDROCHLORIDE
  12. ZINC SULFATE [Concomitant]
     Active Substance: ZINC SULFATE

REACTIONS (9)
  - Back pain [Unknown]
  - Fall [Unknown]
  - Arthralgia [Unknown]
  - Neck pain [Unknown]
  - JC polyomavirus test positive [Unknown]
  - Gait disturbance [Unknown]
  - Vitamin D deficiency [Unknown]
  - Vitamin B12 deficiency [Unknown]
  - Drug ineffective [Unknown]
